FAERS Safety Report 10120964 (Version 3)
Quarter: 2014Q2

REPORT INFORMATION
  Report Type: Spontaneous
  Country: US (occurrence: US)
  Receive Date: 20140425
  Receipt Date: 20140508
  Transmission Date: 20141212
  Serious: Yes (Hospitalization)
  Sender: FDA-Public Use
  Company Number: US-GLAXOSMITHKLINE-A1068514A

PATIENT
  Age: 44 Year
  Sex: Female

DRUGS (1)
  1. VOTRIENT [Suspect]
     Indication: SYNOVIAL SARCOMA
     Dosage: 200MG UNKNOWN
     Route: 065

REACTIONS (13)
  - Blood pressure increased [Unknown]
  - Fatigue [Unknown]
  - Headache [Unknown]
  - Dysarthria [Unknown]
  - Back pain [Unknown]
  - Fall [Unknown]
  - Haematoma [Unknown]
  - Frequent bowel movements [Unknown]
  - Decreased appetite [Unknown]
  - Hair colour changes [Unknown]
  - Splinter [Unknown]
  - Dyspnoea [Unknown]
  - Rash [Unknown]
